FAERS Safety Report 8831330 (Version 2)
Quarter: 2013Q1

REPORT INFORMATION
  Report Type: Spontaneous
  Country: US (occurrence: US)
  Receive Date: 20121008
  Receipt Date: 20130114
  Transmission Date: 20140127
  Serious: Yes (Hospitalization, Other)
  Sender: FDA-Public Use
  Company Number: US-TEVA-363076USA

PATIENT
  Sex: Male

DRUGS (5)
  1. SIMVASTATIN [Suspect]
     Indication: BLOOD CHOLESTEROL INCREASED
     Dates: start: 20120823, end: 201209
  2. CRESTOR [Suspect]
     Indication: BLOOD CHOLESTEROL INCREASED
     Dates: start: 201209, end: 201210
  3. DILTIAZEM [Concomitant]
  4. ISOSORBIDE [Concomitant]
  5. OMEPRAZOLE [Concomitant]

REACTIONS (7)
  - Thrombosis [Unknown]
  - Vein disorder [Unknown]
  - Local swelling [Not Recovered/Not Resolved]
  - Contusion [Unknown]
  - Myalgia [Recovering/Resolving]
  - Gait disturbance [Unknown]
  - Varicose vein [Unknown]
